FAERS Safety Report 26157907 (Version 1)
Quarter: 2025Q4

REPORT INFORMATION
  Report Type: Spontaneous
  Country: US (occurrence: None)
  Receive Date: 20251215
  Receipt Date: 20251215
  Transmission Date: 20260117
  Serious: No
  Sender: FDA-CTU
  Company Number: None

PATIENT
  Age: 75 Year
  Sex: Male

DRUGS (1)
  1. CEFTRIAXONE SODIUM [Suspect]
     Active Substance: CEFTRIAXONE SODIUM
     Indication: Product used for unknown indication
     Dosage: OTHER STRENGTH : 2GM/VIL;
     Dates: start: 20250913, end: 20250913

REACTIONS (2)
  - Rash [None]
  - Syncope [None]

NARRATIVE: CASE EVENT DATE: 20250913
